FAERS Safety Report 20996799 (Version 1)
Quarter: 2022Q2

REPORT INFORMATION
  Report Type: Report from Study
  Country: US (occurrence: US)
  Receive Date: 20220623
  Receipt Date: 20220623
  Transmission Date: 20220720
  Serious: Yes (Other)
  Sender: FDA-Public Use
  Company Number: US-JNJFOC-20220633557

PATIENT
  Age: 4 Decade
  Sex: Female

DRUGS (1)
  1. SIMPONI [Suspect]
     Active Substance: GOLIMUMAB
     Indication: Psoriatic arthropathy
     Route: 058
     Dates: start: 202201

REACTIONS (5)
  - Cellulitis [Unknown]
  - Psoriatic arthropathy [Unknown]
  - Arthropod bite [Unknown]
  - Nasopharyngitis [Unknown]
  - Product dose omission issue [Unknown]
